FAERS Safety Report 7093303-6 (Version None)
Quarter: 2010Q4

REPORT INFORMATION
  Report Type: 
  Country: None (occurrence: None)
  Receive Date: 20101110
  Receipt Date: 20101028
  Transmission Date: 20110411
  Serious: Yes (Hospitalization, Other)
  Sender: FDA-Public Use
  Company Number: DE-AMGEN-DEUCT2010001813

PATIENT

DRUGS (8)
  1. ENBREL [Suspect]
     Indication: RHEUMATOID ARTHRITIS
     Dosage: 50 MG, QWK
     Route: 058
     Dates: start: 20090101
  2. OMEPRAZOLE [Concomitant]
     Dosage: UNKNOWN
  3. INSULIN [Concomitant]
     Dosage: UNKNOWN DOSE THREE TIMES PER DAY
  4. VOLTAREN [Concomitant]
     Dosage: UNKNOWN
  5. METHOTREXATE [Concomitant]
     Dosage: 25MG, FREQUENCY UNKNOWN
     Route: 048
  6. VALORON N [Concomitant]
     Dosage: UNKNOWN
  7. GLUCOCORTICOIDS [Concomitant]
     Dosage: 7.5 MG, UNK
  8. ANTIHYPERTENSIVES [Concomitant]

REACTIONS (2)
  - CONDITION AGGRAVATED [None]
  - HYPERTENSION [None]
